FAERS Safety Report 8911612 (Version 1)
Quarter: 2012Q4

REPORT INFORMATION
  Report Type: 
  Country: CN (occurrence: CN)
  Receive Date: 20121115
  Receipt Date: 20121115
  Transmission Date: 20130627
  Serious: Yes (Other)
  Sender: FDA-Public Use
  Company Number: CN-PFIZER INC-2012281882

PATIENT

DRUGS (3)
  1. ZYVOX [Suspect]
     Dosage: 600 mg, every 12 hours
     Route: 048
  2. VFEND [Concomitant]
  3. MEROPENEM [Concomitant]

REACTIONS (1)
  - Gastrointestinal haemorrhage [Recovering/Resolving]
